FAERS Safety Report 9103431 (Version 1)
Quarter: 2013Q1

REPORT INFORMATION
  Report Type: Spontaneous
  Country: US (occurrence: US)
  Receive Date: 20130219
  Receipt Date: 20130219
  Transmission Date: 20140127
  Serious: Yes (Other)
  Sender: FDA-Public Use
  Company Number: US-PFIZER INC-2013060876

PATIENT
  Age: 47 Year
  Sex: Female
  Weight: 61.68 kg

DRUGS (1)
  1. LYRICA [Suspect]
     Indication: NEURODERMATITIS
     Dosage: 150 MG, 2X/DAY
     Route: 048
     Dates: start: 201207

REACTIONS (5)
  - Hypertension [Unknown]
  - Amnesia [Unknown]
  - Dyspnoea [Unknown]
  - Pallor [Unknown]
  - Off label use [Unknown]
